FAERS Safety Report 13387505 (Version 1)
Quarter: 2017Q1

REPORT INFORMATION
  Report Type: Spontaneous
  Country: US (occurrence: US)
  Receive Date: 20170330
  Receipt Date: 20170330
  Transmission Date: 20170429
  Serious: No
  Sender: FDA-Public Use
  Company Number: US-MYLANLABS-2016M1028793

PATIENT
  Sex: Female
  Weight: 90.7 kg

DRUGS (1)
  1. ESTRADIOL. [Suspect]
     Active Substance: ESTRADIOL
     Indication: HORMONE REPLACEMENT THERAPY
     Dosage: 0.05 MG, QD, CHANGED QWEEK
     Route: 062

REACTIONS (2)
  - Therapeutic response unexpected [Not Recovered/Not Resolved]
  - Weight increased [Not Recovered/Not Resolved]
